FAERS Safety Report 13231938 (Version 1)
Quarter: 2017Q1

REPORT INFORMATION
  Report Type: Spontaneous
  Country: US (occurrence: US)
  Receive Date: 20170214
  Receipt Date: 20170214
  Transmission Date: 20170428
  Serious: No
  Sender: FDA-Public Use
  Company Number: US-ASTRAZENECA-2017SE13322

PATIENT
  Age: 780 Month
  Sex: Female
  Weight: 63.5 kg

DRUGS (3)
  1. HUMALOG [Concomitant]
     Active Substance: INSULIN LISPRO
     Indication: TYPE 1 DIABETES MELLITUS
     Route: 058
  2. SYMLIN [Suspect]
     Active Substance: PRAMLINTIDE ACETATE
     Indication: TYPE 1 DIABETES MELLITUS
     Dosage: 60 MCG, PER MEAL OR THREE TIMES DAILY
     Route: 058
     Dates: start: 201606
  3. INSULIN BOLUS [Concomitant]

REACTIONS (3)
  - Device malfunction [Unknown]
  - Injection site pain [Unknown]
  - Circumstance or information capable of leading to device use error [Unknown]

NARRATIVE: CASE EVENT DATE: 201606
